FAERS Safety Report 11070395 (Version 3)
Quarter: 2020Q1

REPORT INFORMATION
  Report Type: Report from Study
  Country: US (occurrence: US)
  Receive Date: 20150427
  Receipt Date: 20200306
  Transmission Date: 20200409
  Serious: Yes (Hospitalization, Other)
  Sender: FDA-Public Use
  Company Number: US-SA-2014SA161109

PATIENT
  Age: 79 Year
  Sex: Male

DRUGS (11)
  1. INSULIN GLULISINE [Suspect]
     Active Substance: INSULIN GLULISINE
     Dosage: UNK
     Route: 058
  2. LYRICA [Concomitant]
     Active Substance: PREGABALIN
     Indication: NEUROPATHY PERIPHERAL
     Dosage: UNK
  3. VIAGRA [Concomitant]
     Active Substance: SILDENAFIL CITRATE
     Dosage: UNK
  4. INSULIN GLULISINE [Suspect]
     Active Substance: INSULIN GLULISINE
     Dosage: UNK UNK,PRN
     Route: 058
  5. INSULIN GLULISINE [Suspect]
     Active Substance: INSULIN GLULISINE
     Dosage: 30 DF,QD
     Route: 058
     Dates: start: 20120206
  6. INSULIN GLULISINE [Suspect]
     Active Substance: INSULIN GLULISINE
     Indication: TYPE 2 DIABETES MELLITUS
     Dosage: UNK UNK, TID
     Route: 058
     Dates: start: 2011
  7. INSULIN GLULISINE [Suspect]
     Active Substance: INSULIN GLULISINE
     Dosage: UNK UNK,PRN
     Route: 058
  8. LANTUS [Concomitant]
     Active Substance: INSULIN GLARGINE
     Indication: CHRONIC KIDNEY DISEASE
     Dosage: 45 DF,QD
     Route: 058
     Dates: start: 20120213
  9. LANTUS [Concomitant]
     Active Substance: INSULIN GLARGINE
     Dosage: 60 U, BID
     Route: 058
  10. LANTUS [Concomitant]
     Active Substance: INSULIN GLARGINE
     Indication: TYPE 2 DIABETES MELLITUS
     Dosage: 60 DF,HS
     Dates: start: 20190206
  11. INSULIN GLULISINE [Suspect]
     Active Substance: INSULIN GLULISINE
     Indication: DIABETES MELLITUS MANAGEMENT
     Dosage: 20 DF, UNK
     Route: 058

REACTIONS (19)
  - Unevaluable event [Unknown]
  - Stitch abscess [Unknown]
  - Burning sensation [Not Recovered/Not Resolved]
  - Blood glucose increased [Unknown]
  - Malaise [Not Recovered/Not Resolved]
  - Intentional product misuse [Unknown]
  - Post procedural infection [Not Recovered/Not Resolved]
  - Influenza [Unknown]
  - Hyperglycaemia [Not Recovered/Not Resolved]
  - Blood glucose increased [Unknown]
  - Sleep apnoea syndrome [Unknown]
  - Blood glucose decreased [Unknown]
  - Pneumonia [Not Recovered/Not Resolved]
  - Weight decreased [Not Recovered/Not Resolved]
  - Hip arthroplasty [Recovered/Resolved]
  - Bronchitis [Unknown]
  - Pleural effusion [Unknown]
  - Amnesia [Not Recovered/Not Resolved]
  - Product dose omission [Unknown]

NARRATIVE: CASE EVENT DATE: 2015
